FAERS Safety Report 25340015 (Version 2)
Quarter: 2025Q4

REPORT INFORMATION
  Report Type: Spontaneous
  Country: EU (occurrence: EU)
  Receive Date: 20250521
  Receipt Date: 20251023
  Transmission Date: 20260118
  Serious: No
  Sender: BLUEPRINT MEDICINES
  Company Number: EU-Blueprint Medicines Corporation-2025-AER-01064

PATIENT
  Sex: Male

DRUGS (2)
  1. AVAPRITINIB [Suspect]
     Active Substance: AVAPRITINIB
     Indication: Advanced systemic mastocytosis
     Route: 065
     Dates: start: 202503, end: 202505
  2. AVAPRITINIB [Suspect]
     Active Substance: AVAPRITINIB
     Route: 065
     Dates: start: 202508, end: 202509

REACTIONS (4)
  - Swelling face [Unknown]
  - Swelling of eyelid [Unknown]
  - Weight increased [Unknown]
  - Conjunctival haemorrhage [Unknown]

NARRATIVE: CASE EVENT DATE: 20250501
